FAERS Safety Report 14661097 (Version 4)
Quarter: 2018Q4

REPORT INFORMATION
  Report Type: Spontaneous
  Country: US (occurrence: US)
  Receive Date: 20180320
  Receipt Date: 20181011
  Transmission Date: 20190204
  Serious: Yes (Other)
  Sender: FDA-Public Use
  Company Number: US-GLAXOSMITHKLINE-US2018045476

PATIENT
  Age: 64 Year
  Sex: Female

DRUGS (9)
  1. ELAVIL [Concomitant]
     Active Substance: AMITRIPTYLINE HYDROCHLORIDE
  2. OMEPRAZOLE. [Concomitant]
     Active Substance: OMEPRAZOLE
  3. GABAPENTIN. [Concomitant]
     Active Substance: GABAPENTIN
  4. VOLTAREN [Concomitant]
     Active Substance: DICLOFENAC SODIUM
  5. BENLYSTA [Suspect]
     Active Substance: BELIMUMAB
     Indication: SYSTEMIC LUPUS ERYTHEMATOSUS
     Dosage: UNK UNK, U
     Route: 042
     Dates: end: 201802
  6. BENLYSTA [Suspect]
     Active Substance: BELIMUMAB
     Dosage: 200 MG, UNK
     Route: 058
     Dates: start: 20180308
  7. HYDROCHLOROTHIAZIDE. [Concomitant]
     Active Substance: HYDROCHLOROTHIAZIDE
  8. PREDNISONE. [Concomitant]
     Active Substance: PREDNISONE
  9. BENLYSTA [Suspect]
     Active Substance: BELIMUMAB
     Indication: SYSTEMIC LUPUS ERYTHEMATOSUS
     Dosage: 200 MG, WE
     Route: 058
     Dates: start: 20180315

REACTIONS (14)
  - Malaise [Unknown]
  - Back pain [Unknown]
  - Impaired work ability [Unknown]
  - Neuropathy peripheral [Unknown]
  - Pain [Recovering/Resolving]
  - Arthritis [Unknown]
  - Disability [Unknown]
  - Surgery [Unknown]
  - Injection site pain [Recovered/Resolved]
  - Drug effect incomplete [Unknown]
  - Rash [Recovering/Resolving]
  - Systemic lupus erythematosus [Recovering/Resolving]
  - Feeling hot [Recovering/Resolving]
  - Therapeutic procedure [Unknown]

NARRATIVE: CASE EVENT DATE: 20180331
